FAERS Safety Report 7398157-6 (Version None)
Quarter: 2011Q2

REPORT INFORMATION
  Report Type: 
  Country: None (occurrence: None)
  Receive Date: 20110406
  Receipt Date: 20110324
  Transmission Date: 20111010
  Serious: Yes (Other)
  Sender: FDA-Public Use
  Company Number: PHHY2011NL24765

PATIENT
  Sex: Male

DRUGS (4)
  1. ZOMETA [Suspect]
     Dosage: 4 MG, PER 5 ML
     Route: 042
     Dates: start: 20110225
  2. ZOMETA [Suspect]
     Dosage: 4 MG, PER 5 ML
     Route: 042
     Dates: start: 20080904
  3. ZOMETA [Suspect]
     Indication: PROSTATE CANCER METASTATIC
     Dosage: 4 MG, PER 5 ML
     Route: 042
  4. ZOMETA [Suspect]
     Dosage: 4 MG, PER 5 ML
     Route: 042
     Dates: start: 20110324

REACTIONS (18)
  - MALAISE [None]
  - PERIPHERAL COLDNESS [None]
  - DYSPNOEA [None]
  - SOMNOLENCE [None]
  - NEOPLASM MALIGNANT [None]
  - COAGULOPATHY [None]
  - FEELING COLD [None]
  - LISTLESS [None]
  - ANAEMIA [None]
  - PALLOR [None]
  - ASTHENIA [None]
  - FALL [None]
  - FATIGUE [None]
  - TERMINAL STATE [None]
  - ANGIOPATHY [None]
  - GAIT DISTURBANCE [None]
  - DECREASED APPETITE [None]
  - CYANOSIS [None]
